FAERS Safety Report 13229029 (Version 2)
Quarter: 2017Q1

REPORT INFORMATION
  Report Type: Spontaneous
  Country: AU (occurrence: AU)
  Receive Date: 20170214
  Receipt Date: 20170320
  Transmission Date: 20170428
  Serious: Yes (Other)
  Sender: FDA-Public Use
  Company Number: AU-AMGEN-AUSSP2017023083

PATIENT
  Sex: Female

DRUGS (1)
  1. ENBREL [Suspect]
     Active Substance: ETANERCEPT
     Indication: PRODUCT USED FOR UNKNOWN INDICATION
     Dosage: UNK
     Route: 065

REACTIONS (11)
  - Product quality issue [Unknown]
  - Injection site mass [Unknown]
  - Urticaria [Unknown]
  - Injection site pain [Unknown]
  - Facial paralysis [Unknown]
  - Rash [Unknown]
  - Condition aggravated [Unknown]
  - Weight increased [Unknown]
  - Acne [Unknown]
  - Injection site bruising [Unknown]
  - Skin warm [Unknown]
